FAERS Safety Report 13036762 (Version 1)
Quarter: 2016Q4

REPORT INFORMATION
  Report Type: Spontaneous
  Country: US (occurrence: US)
  Receive Date: 20161216
  Receipt Date: 20161216
  Transmission Date: 20170207
  Serious: No
  Sender: FDA-Public Use
  Company Number: US-PERRIGO-16US019548

PATIENT
  Age: 48 Year
  Sex: Female
  Weight: 45.35 kg

DRUGS (2)
  1. TIOCONAZOLE. [Suspect]
     Active Substance: TIOCONAZOLE
     Indication: VULVOVAGINAL MYCOTIC INFECTION
     Dosage: 300 MG, SINGLE
     Route: 067
     Dates: start: 20160819, end: 20160819
  2. TIOCONAZOLE. [Suspect]
     Active Substance: TIOCONAZOLE
     Dosage: 300 MG, SINGLE
     Route: 067
     Dates: start: 20160825, end: 20160825

REACTIONS (2)
  - Drug ineffective [Unknown]
  - Off label use [Recovered/Resolved]

NARRATIVE: CASE EVENT DATE: 20160819
